FAERS Safety Report 8144616-8 (Version None)
Quarter: 2012Q1

REPORT INFORMATION
  Report Type: 
  Country: None (occurrence: None)
  Receive Date: 20120217
  Receipt Date: 20120215
  Transmission Date: 20120608
  Serious: Yes (Death, Hospitalization, Other)
  Sender: FDA-Public Use
  Company Number: NL-GENZYME-CLOF-1001984

PATIENT
  Sex: Male
  Weight: 89 kg

DRUGS (3)
  1. EVOLTRA [Suspect]
     Indication: ACUTE MYELOID LEUKAEMIA
     Dosage: 20 MG, UNK
     Route: 042
     Dates: start: 20110901, end: 20110905
  2. CYTARABINE [Suspect]
     Indication: ACUTE MYELOID LEUKAEMIA
     Dosage: 2000 MG X 2, UNK
     Route: 042
     Dates: start: 20110901, end: 20110906
  3. AMSACRINE [Suspect]
     Indication: ACUTE MYELOID LEUKAEMIA
     Dosage: 245 MG, UNK
     Route: 042
     Dates: start: 20110904, end: 20110906

REACTIONS (2)
  - SEPSIS [None]
  - CHOLECYSTITIS [None]
